FAERS Safety Report 22913327 (Version 2)
Quarter: 2024Q1

REPORT INFORMATION
  Report Type: Spontaneous
  Country: BG (occurrence: BG)
  Receive Date: 20230906
  Receipt Date: 20240319
  Transmission Date: 20240410
  Serious: Yes (Death, Hospitalization)
  Sender: FDA-Public Use
  Company Number: BG-002147023-NVSC2023BG186931

PATIENT

DRUGS (10)
  1. RUXOLITINIB [Suspect]
     Active Substance: RUXOLITINIB
     Indication: Product used for unknown indication
     Dosage: UNK
     Route: 065
     Dates: start: 202010
  2. RUXOLITINIB [Suspect]
     Active Substance: RUXOLITINIB
     Indication: Myelofibrosis
     Dosage: 20 MG, BID (PER OS)
     Route: 048
     Dates: start: 20200909
  3. BISOPROLOL FUMARATE [Concomitant]
     Active Substance: BISOPROLOL FUMARATE
     Indication: Myocardial ischaemia
     Dosage: 5 MG, BID (PER OS)
     Route: 048
     Dates: start: 202210
  4. CARDIFRIEND [Concomitant]
     Indication: Myocardial ischaemia
     Dosage: 5 MG (PER OS)
     Route: 048
     Dates: start: 202210
  5. DIGOXIN [Concomitant]
     Active Substance: DIGOXIN
     Indication: Myocardial ischaemia
     Dosage: 0.125 MG (PER OS)
     Route: 048
     Dates: start: 202210
  6. SINTROM [Concomitant]
     Active Substance: ACENOCOUMAROL
     Indication: Myocardial ischaemia
     Dosage: UNK (PER OS) (AS PER SCHEMA)
     Route: 048
     Dates: start: 202210
  7. FUROSEMIDE [Concomitant]
     Active Substance: FUROSEMIDE
     Indication: Myocardial ischaemia
     Dosage: 20 MG (PER OS)
     Route: 048
     Dates: start: 202210
  8. SPIRONOLACTONE [Concomitant]
     Active Substance: SPIRONOLACTONE
     Indication: Myocardial ischaemia
     Dosage: 50 MG (PER OS)
     Route: 048
     Dates: start: 202210
  9. THEOPHYLLINE ANHYDROUS [Concomitant]
     Active Substance: THEOPHYLLINE ANHYDROUS
     Indication: Myocardial ischaemia
     Dosage: 300 MG (PER OS)
     Route: 048
     Dates: start: 202210
  10. METFORMIN HYDROCHLORIDE [Concomitant]
     Active Substance: METFORMIN HYDROCHLORIDE
     Indication: Type 2 diabetes mellitus
     Dosage: 1000 MG (PER OS)
     Route: 048
     Dates: start: 202210

REACTIONS (10)
  - Anaemia [Not Recovered/Not Resolved]
  - C-reactive protein increased [Unknown]
  - Death [Fatal]
  - Dysphagia [Not Recovered/Not Resolved]
  - Red blood cell sedimentation rate increased [Unknown]
  - Haemoglobin decreased [Unknown]
  - Splenomegaly [Not Recovered/Not Resolved]
  - Thrombocytosis [Not Recovered/Not Resolved]
  - Fatigue [Not Recovered/Not Resolved]
  - Asthenia [Not Recovered/Not Resolved]

NARRATIVE: CASE EVENT DATE: 20230228
